FAERS Safety Report 16111935 (Version 1)
Quarter: 2019Q2

REPORT INFORMATION
  Report Type: Spontaneous
  Country: US (occurrence: US)
  Receive Date: 20190322
  Receipt Date: 20190322
  Transmission Date: 20190711
  Serious: Yes (Other)
  Sender: FDA-Public Use
  Company Number: None

PATIENT
  Age: 64 Year
  Sex: Female
  Weight: 67.95 kg

DRUGS (2)
  1. VITAMIN D NOS [Concomitant]
     Active Substance: VITAMIN D NOS
  2. PROPOFOL. [Suspect]
     Active Substance: PROPOFOL
     Indication: ANAESTHESIA PROCEDURE
     Dosage: ?          QUANTITY:1 INFUSION;?
     Route: 042
     Dates: start: 20190213, end: 20190213

REACTIONS (2)
  - Kounis syndrome [None]
  - Chest pain [None]

NARRATIVE: CASE EVENT DATE: 20190213
